FAERS Safety Report 7546285-4 (Version None)
Quarter: 2011Q2

REPORT INFORMATION
  Report Type: 
  Country: None (occurrence: None)
  Receive Date: 20110614
  Receipt Date: 20041025
  Transmission Date: 20111010
  Serious: Yes (Other)
  Sender: FDA-Public Use
  Company Number: PHNR2004AU01452

PATIENT
  Sex: Male

DRUGS (2)
  1. CLOZAPINE [Suspect]
     Indication: SCHIZOPHRENIA
     Dosage: 200 MG, QD
     Dates: start: 20040916
  2. CLOZAPINE [Suspect]
     Dosage: 200 MG, QD
     Dates: start: 20040916

REACTIONS (4)
  - VENTRICULAR HYPERTROPHY [None]
  - CARDIAC DISORDER [None]
  - EJECTION FRACTION DECREASED [None]
  - PERICARDIAL EFFUSION [None]
